FAERS Safety Report 10174072 (Version 2)
Quarter: 2014Q2

REPORT INFORMATION
  Report Type: Spontaneous
  Country: GB (occurrence: GB)
  Receive Date: 20140515
  Receipt Date: 20140613
  Transmission Date: 20141212
  Serious: Yes (Other)
  Sender: FDA-Public Use
  Company Number: PHHY2014GB057823

PATIENT
  Age: 84 Year
  Sex: Male
  Weight: 102 kg

DRUGS (8)
  1. CO-CODAMOL [Suspect]
     Indication: MUSCULOSKELETAL PAIN
     Dosage: UNK UKN, UNK, 1 TO 2 PRN
  2. CO-CODAMOL [Suspect]
     Dosage: 16 DF, ONCE/SINGLE
  3. AMLODIPINE [Concomitant]
  4. GLIMEPIRIDE [Concomitant]
  5. LOSARTAN [Concomitant]
  6. METFORMIN [Concomitant]
  7. SIMVASTATIN [Concomitant]
  8. SOTALOL [Concomitant]

REACTIONS (2)
  - Somnolence [Recovered/Resolved]
  - Accidental overdose [Recovered/Resolved]
